FAERS Safety Report 10095316 (Version 1)
Quarter: 2014Q2

REPORT INFORMATION
  Report Type: Spontaneous
  Country: US (occurrence: US)
  Receive Date: 20140422
  Receipt Date: 20140422
  Transmission Date: 20141212
  Serious: No
  Sender: FDA-Public Use
  Company Number: US-GILEAD-2014-0099873

PATIENT
  Age: 60 Year
  Sex: Male

DRUGS (4)
  1. SOVALDI [Suspect]
     Indication: HEPATITIS C
     Dosage: 2 DF, QD
     Route: 065
     Dates: start: 20140319, end: 20140326
  2. SOVALDI [Suspect]
     Dosage: 1 DF, QD
     Route: 065
     Dates: start: 20140312
  3. PEGINTERFERON [Concomitant]
  4. RIBAVIRIN [Concomitant]

REACTIONS (2)
  - Nausea [Unknown]
  - Overdose [Recovered/Resolved]
